FAERS Safety Report 6060849-9 (Version None)
Quarter: 2009Q1

REPORT INFORMATION
  Report Type: 
  Country: None (occurrence: None)
  Receive Date: 20090130
  Receipt Date: 20090130
  Transmission Date: 20090719
  Serious: Yes (Other)
  Sender: FDA-Public Use
  Company Number: None

PATIENT
  Sex: Female
  Weight: 45.8133 kg

DRUGS (6)
  1. BONIVA [Suspect]
     Indication: OSTEOPOROSIS
     Dosage: 150 MG Q MONTH Q47
     Dates: start: 20080804, end: 20080903
  2. CLIMARA PRO [Concomitant]
  3. MULTI-VITAMIN [Concomitant]
  4. CALCIUM [Concomitant]
  5. VITAMIN D [Concomitant]
  6. COSAMINE DS [Concomitant]

REACTIONS (7)
  - CHEST PAIN [None]
  - DEHYDRATION [None]
  - HYPOPHAGIA [None]
  - OESOPHAGITIS ULCERATIVE [None]
  - PAIN [None]
  - PYREXIA [None]
  - WHITE BLOOD CELL COUNT INCREASED [None]
